FAERS Safety Report 10513400 (Version 1)
Quarter: 2014Q4

REPORT INFORMATION
  Report Type: Spontaneous
  Country: AU (occurrence: AU)
  Receive Date: 20141013
  Receipt Date: 20141013
  Transmission Date: 20150528
  Serious: Yes (Other)
  Sender: FDA-Public Use
  Company Number: AU-MYLANLABS-2014M1006763

PATIENT

DRUGS (1)
  1. ZIMSTAT [Suspect]
     Active Substance: SIMVASTATIN
     Indication: PRODUCT USED FOR UNKNOWN INDICATION
     Dosage: 1 DF, QD
     Dates: end: 20141002

REACTIONS (3)
  - Myalgia [Recovered/Resolved]
  - Dry throat [Recovered/Resolved]
  - Dizziness [Recovered/Resolved]
